FAERS Safety Report 5090171-9 (Version None)
Quarter: 2006Q3

REPORT INFORMATION
  Report Type: 
  Country: None (occurrence: None)
  Receive Date: 20060828
  Receipt Date: 20060817
  Transmission Date: 20061208
  Serious: Yes (Hospitalization)
  Sender: FDA-Public Use
  Company Number: US-JNJFOC-20060704078

PATIENT
  Sex: Female

DRUGS (15)
  1. IBUPROFEN [Suspect]
     Indication: ARTHRITIS
  2. DIOVAN [Interacting]
     Indication: HYPERTENSION
  3. ASPIRIN [Concomitant]
     Indication: ANTICOAGULANT THERAPY
  4. LORATADINE [Concomitant]
  5. RANITIDINE HCL [Concomitant]
  6. NIZATIDINE [Concomitant]
  7. NAMENDA [Concomitant]
  8. FUROSEMIDE [Concomitant]
  9. ARICEPT [Concomitant]
  10. DETROL LA [Concomitant]
  11. LEVOTHYROXINE SODIUM [Concomitant]
  12. ZOLOFT [Concomitant]
  13. VITAMINS [Concomitant]
  14. CENTRUM SILVER [Concomitant]
  15. OYSCO [Concomitant]
     Dosage: 125 MG/IU

REACTIONS (3)
  - DRUG INTERACTION [None]
  - HEADACHE [None]
  - HYPERTENSION [None]
